FAERS Safety Report 8115606-6 (Version None)
Quarter: 2012Q1

REPORT INFORMATION
  Report Type: 
  Country: None (occurrence: None)
  Receive Date: 20120206
  Receipt Date: 20120131
  Transmission Date: 20120608
  Serious: Yes (Other)
  Sender: FDA-Public Use
  Company Number: MX-JNJFOC-20111207502

PATIENT
  Sex: Male
  Weight: 80 kg

DRUGS (3)
  1. BENADRYL [Suspect]
     Route: 048
  2. CLOROTRIMETON [Concomitant]
     Indication: HYPERSENSITIVITY
     Route: 048
     Dates: start: 20111130, end: 20111202
  3. BENADRYL [Suspect]
     Indication: COUGH
     Dosage: ONLY ONE DOSE GIVEN
     Route: 048
     Dates: start: 20111203, end: 20111203

REACTIONS (5)
  - LOSS OF CONSCIOUSNESS [None]
  - SYNCOPE [None]
  - TRANSIENT ISCHAEMIC ATTACK [None]
  - OVERDOSE [None]
  - CEREBRAL INFARCTION [None]
